FAERS Safety Report 17821870 (Version 1)
Quarter: 2020Q2

REPORT INFORMATION
  Report Type: Spontaneous
  Country: IT (occurrence: IT)
  Receive Date: 20200525
  Receipt Date: 20200525
  Transmission Date: 20200714
  Serious: Yes (Other)
  Sender: FDA-Public Use
  Company Number: IT-BRISTOL-MYERS SQUIBB COMPANY-BMS-2020-038719

PATIENT
  Sex: Female

DRUGS (9)
  1. TRIATEC [RAMIPRIL] [Concomitant]
     Active Substance: RAMIPRIL
     Indication: PRODUCT USED FOR UNKNOWN INDICATION
     Dosage: 5 OT
     Route: 065
     Dates: start: 20180605
  2. JAKAVI [RUXOLITINIB PHOSPHATE] [Suspect]
     Active Substance: RUXOLITINIB PHOSPHATE
     Indication: POLYCYTHAEMIA VERA
     Dosage: 20 OT, UNK
     Route: 048
     Dates: start: 20180310
  3. CLEXANE [Concomitant]
     Active Substance: ENOXAPARIN SODIUM
     Indication: ASPIRATION
     Dosage: 4000 OT
     Route: 065
     Dates: start: 20190907, end: 20190909
  4. ACICLOVIR [Concomitant]
     Active Substance: ACYCLOVIR
     Indication: ANTIVIRAL PROPHYLAXIS
     Dosage: 400 OT
     Route: 065
     Dates: start: 20180310
  5. LOBIVON [Concomitant]
     Active Substance: NEBIVOLOL HYDROCHLORIDE
     Indication: PRODUCT USED FOR UNKNOWN INDICATION
     Dosage: UNK
     Route: 065
     Dates: start: 20180605
  6. COUMADIN [Suspect]
     Active Substance: WARFARIN SODIUM
     Indication: PRODUCT USED FOR UNKNOWN INDICATION
     Dosage: 2.5 OT
     Route: 065
     Dates: start: 20190911, end: 20191214
  7. COUMADIN [Suspect]
     Active Substance: WARFARIN SODIUM
     Indication: ANTICOAGULANT THERAPY
     Dosage: 2.5 OT
     Route: 065
     Dates: start: 20131220
  8. ACETYLSALICYLIC ACID;ALUMINIUM GLYCINATE;MAGNESIUM CARBONATE [Suspect]
     Active Substance: ASPIRIN\DIHYDROXYALUMINUM AMINOACETATE ANHYDROUS\MAGNESIUM CARBONATE
     Indication: ANTICOAGULANT THERAPY
     Dosage: 100 OT
     Route: 065
     Dates: start: 20190911, end: 20191214
  9. CLEXANE [Concomitant]
     Active Substance: ENOXAPARIN SODIUM
     Indication: PARATHYROIDECTOMY
     Dosage: 4000 OT
     Route: 065
     Dates: start: 20191215

REACTIONS (11)
  - Thrombocytosis [Recovering/Resolving]
  - Second primary malignancy [Recovered/Resolved]
  - Chills [Recovered/Resolved]
  - Skin hypertrophy [Recovered/Resolved]
  - Hypertension [Recovered/Resolved]
  - Anaemia [Recovered/Resolved]
  - Basal cell carcinoma [Recovered/Resolved]
  - Arthralgia [Recovered/Resolved]
  - Thyroid mass [Recovering/Resolving]
  - Erythema [Recovered/Resolved]
  - Disturbance in attention [Unknown]

NARRATIVE: CASE EVENT DATE: 20180508
